FAERS Safety Report 24313810 (Version 1)
Quarter: 2024Q3

REPORT INFORMATION
  Report Type: Spontaneous
  Country: CA (occurrence: CA)
  Receive Date: 20240912
  Receipt Date: 20240912
  Transmission Date: 20241017
  Serious: Yes (Other)
  Sender: PFIZER
  Company Number: CA-PFIZER INC-202400254712

PATIENT
  Sex: Female

DRUGS (2)
  1. XELJANZ [Suspect]
     Active Substance: TOFACITINIB CITRATE
     Route: 065
  2. SIMPONI [Suspect]
     Active Substance: GOLIMUMAB
     Indication: Arthritis
     Dosage: 50 MG
     Route: 058

REACTIONS (8)
  - Carpal tunnel syndrome [Unknown]
  - Cyst [Unknown]
  - Erythema [Unknown]
  - Gait disturbance [Unknown]
  - Hernia [Unknown]
  - Insomnia [Unknown]
  - Memory impairment [Unknown]
  - Peripheral swelling [Unknown]
